FAERS Safety Report 17623363 (Version 3)
Quarter: 2021Q2

REPORT INFORMATION
  Report Type: Spontaneous
  Country: US (occurrence: US)
  Receive Date: 20200403
  Receipt Date: 20210412
  Transmission Date: 20210716
  Serious: Yes (Death, Other)
  Sender: FDA-Public Use
  Company Number: US-AMGEN-USASP2020052857

PATIENT
  Age: 32 Year
  Sex: Male

DRUGS (4)
  1. CARFILZOMIB [Suspect]
     Active Substance: CARFILZOMIB
     Indication: IMMUNE TOLERANCE INDUCTION
     Dosage: 20 MILLIGRAM/SQ. METER
     Route: 065
  2. GLOBULIN [Concomitant]
     Indication: IMMUNE TOLERANCE INDUCTION
     Dosage: 2 GRAM PER KILOGRAM
     Route: 042
  3. MYCOPHENOLATE MOFETIL. [Concomitant]
     Active Substance: MYCOPHENOLATE MOFETIL
     Dosage: UNK
  4. TACROLIMUS. [Concomitant]
     Active Substance: TACROLIMUS
     Dosage: UNK

REACTIONS (5)
  - Cardiac failure congestive [Unknown]
  - Death [Fatal]
  - Multiple organ dysfunction syndrome [Unknown]
  - Off label use [Unknown]
  - Acute kidney injury [Recovered/Resolved]
